FAERS Safety Report 7438878-X (Version None)
Quarter: 2011Q2

REPORT INFORMATION
  Report Type: 
  Country: None (occurrence: None)
  Receive Date: 20110426
  Receipt Date: 20110415
  Transmission Date: 20111010
  Serious: No
  Sender: FDA-Public Use
  Company Number: US-ELI_LILLY_AND_COMPANY-US201010006053

PATIENT
  Age: 86 Year
  Sex: Female
  Weight: 56.689 kg

DRUGS (4)
  1. FORTEO [Suspect]
     Indication: OSTEOPOROSIS
     Dosage: 20 UG, QD
     Route: 058
     Dates: start: 20100712
  2. EVISTA [Concomitant]
  3. HYDROCHLOROTHIAZIDE [Concomitant]
  4. CALCIUM WITH VITAMIN D [Concomitant]

REACTIONS (1)
  - UPPER RESPIRATORY TRACT INFECTION [None]
